FAERS Safety Report 19570477 (Version 1)
Quarter: 2021Q3

REPORT INFORMATION
  Report Type: Spontaneous
  Country: CA (occurrence: CA)
  Receive Date: 20210715
  Receipt Date: 20210715
  Transmission Date: 20211014
  Serious: Yes (Disabling)
  Sender: FDA-Public Use
  Company Number: CA-ROCHE-2870115

PATIENT
  Age: 67 Year
  Sex: Male
  Weight: 78 kg

DRUGS (16)
  1. SENOKOT [Concomitant]
     Active Substance: SENNOSIDES
  2. AVODART [Concomitant]
     Active Substance: DUTASTERIDE
  3. COLACE [Concomitant]
     Active Substance: DOCUSATE SODIUM
  4. HYDROMORPHONE [Concomitant]
     Active Substance: HYDROMORPHONE
  5. TYLENOL [Concomitant]
     Active Substance: ACETAMINOPHEN
  6. PANTOLOC [Concomitant]
     Active Substance: PANTOPRAZOLE SODIUM
  7. LYRICA [Concomitant]
     Active Substance: PREGABALIN
  8. FAMPYRA [Concomitant]
     Active Substance: DALFAMPRIDINE
  9. FLOMAX [Concomitant]
     Active Substance: TAMSULOSIN HYDROCHLORIDE
  10. LIPITOR [Concomitant]
     Active Substance: ATORVASTATIN CALCIUM
  11. OCREVUS [Suspect]
     Active Substance: OCRELIZUMAB
     Indication: MULTIPLE SCLEROSIS
     Route: 042
  12. TOPAMAX [Concomitant]
     Active Substance: TOPIRAMATE
  13. AVAPRO [Concomitant]
     Active Substance: IRBESARTAN
  14. BENADRYL [Concomitant]
     Active Substance: DIPHENHYDRAMINE HYDROCHLORIDE
  15. LAX?A?DAY [Concomitant]
     Active Substance: POLYETHYLENE GLYCOL 3350
     Route: 048
  16. LIORESAL [Concomitant]
     Active Substance: BACLOFEN

REACTIONS (1)
  - Cerebrovascular accident [Recovered/Resolved with Sequelae]
